FAERS Safety Report 7610798-7 (Version None)
Quarter: 2011Q3

REPORT INFORMATION
  Report Type: 
  Country: None (occurrence: None)
  Receive Date: 20110715
  Receipt Date: 20110708
  Transmission Date: 20111222
  Serious: Yes (Life-Threatening, Hospitalization, Other)
  Sender: FDA-Public Use
  Company Number: PHHY2011JP61672

PATIENT
  Sex: Female

DRUGS (3)
  1. CHEMOTHERAPEUTICS NOS [Concomitant]
  2. FEMARA [Suspect]
     Indication: BREAST CANCER
     Dosage: 2.5 MG, DAILY
     Route: 048
     Dates: start: 20110301
  3. ANTIHYPERTENSIVES [Concomitant]

REACTIONS (4)
  - WHITE BLOOD CELL COUNT DECREASED [None]
  - ACUTE MYELOID LEUKAEMIA [None]
  - FEBRILE NEUTROPENIA [None]
  - NEUTROPHIL COUNT DECREASED [None]
